FAERS Safety Report 5592846-1 (Version None)
Quarter: 2008Q1

REPORT INFORMATION
  Report Type: 
  Country: None (occurrence: None)
  Receive Date: 20080116
  Receipt Date: 20080108
  Transmission Date: 20080703
  Serious: Yes (Other)
  Sender: FDA-Public Use
  Company Number: PHHO2007IT18570

PATIENT
  Sex: Female
  Weight: 62 kg

DRUGS (2)
  1. TAMOXIFEN CITRATE [Suspect]
     Indication: BREAST CANCER
     Dosage: DOUBLE BLIND
     Route: 048
     Dates: start: 20030318
  2. CRESTOR [Concomitant]

REACTIONS (2)
  - ACCIDENT [None]
  - PATELLA FRACTURE [None]
